FAERS Safety Report 10155946 (Version 1)
Quarter: 2014Q2

REPORT INFORMATION
  Report Type: Spontaneous
  Country: GB (occurrence: GB)
  Receive Date: 20140506
  Receipt Date: 20140506
  Transmission Date: 20141212
  Serious: Yes (Hospitalization)
  Sender: FDA-Public Use
  Company Number: GB-MYLANLABS-2014S1009559

PATIENT
  Age: 15 Year
  Sex: Male
  Weight: 62 kg

DRUGS (1)
  1. ISOTRETINOIN [Suspect]
     Dosage: STARTED APPROXIMATELY 6 MONTHS AGO, DOSE LAST INCREASED 3 MONTHS AGO.
     Route: 048
     Dates: start: 2013, end: 20140415

REACTIONS (2)
  - Haematuria [Recovering/Resolving]
  - White blood cell count increased [Recovering/Resolving]
